FAERS Safety Report 7007230-3 (Version None)
Quarter: 2010Q3

REPORT INFORMATION
  Report Type: 
  Country: None (occurrence: None)
  Receive Date: 20100917
  Receipt Date: 20100910
  Transmission Date: 20110219
  Serious: Yes (Hospitalization, Other)
  Sender: FDA-Public Use
  Company Number: 2009SP021074

PATIENT
  Age: 31 Year
  Sex: Female
  Weight: 99.7913 kg

DRUGS (4)
  1. NUVARING [Suspect]
     Indication: CONTRACEPTION
     Dates: start: 20070501, end: 20070808
  2. DEPO-PROVERA [Suspect]
     Indication: CONTRACEPTION
     Dates: end: 20070101
  3. CYMBALTA [Concomitant]
  4. MULTI-VITAMIN [Concomitant]

REACTIONS (7)
  - BODY TEMPERATURE INCREASED [None]
  - HEADACHE [None]
  - JAUNDICE [None]
  - OEDEMA PERIPHERAL [None]
  - PAIN IN EXTREMITY [None]
  - PULMONARY EMBOLISM [None]
  - WHEEZING [None]
